FAERS Safety Report 8880357 (Version 1)
Quarter: 2012Q4

REPORT INFORMATION
  Report Type: 
  Country: US (occurrence: US)
  Receive Date: 20121031
  Receipt Date: 20121031
  Transmission Date: 20130627
  Serious: Yes (Hospitalization)
  Sender: FDA-Public Use
  Company Number: PHHY2012US096178

PATIENT
  Age: 22 Year
  Sex: Female

DRUGS (5)
  1. PREDNISONE [Suspect]
     Dosage: 10 mg every other day
  2. PREDNISONE [Suspect]
     Dosage: 60 mg, QD
  3. RITUXIMAB [Suspect]
     Dosage: 375 mg/m2, 4 weekly at 6-month intervals
  4. FLUOROQUINOLONES [Concomitant]
  5. PYRIDOSTIGMINE BROMIDE [Concomitant]
     Dosage: 180 mg, QD

REACTIONS (20)
  - Hypogammaglobulinaemia [Recovered/Resolved]
  - Mastoiditis [Recovered/Resolved]
  - Deafness unilateral [Recovered/Resolved]
  - External ear disorder [Recovered/Resolved]
  - Ear pain [Recovered/Resolved]
  - Moraxella infection [Recovered/Resolved]
  - Myasthenia gravis [Recovered/Resolved]
  - Soft tissue infection [Recovered/Resolved]
  - Wound dehiscence [Recovered/Resolved]
  - Purulent discharge [Recovered/Resolved]
  - Soft tissue disorder [Recovered/Resolved]
  - Staphylococcal infection [Recovered/Resolved]
  - Facial pain [Recovered/Resolved]
  - Otorrhoea [Recovered/Resolved]
  - Pyrexia [Recovered/Resolved]
  - Chills [Recovered/Resolved]
  - External ear inflammation [Recovered/Resolved]
  - Headache [Recovered/Resolved]
  - Musculoskeletal stiffness [Recovered/Resolved]
  - Photophobia [Recovered/Resolved]
